FAERS Safety Report 25521564 (Version 2)
Quarter: 2025Q3

REPORT INFORMATION
  Report Type: Report from Study
  Country: GB (occurrence: GB)
  Receive Date: 20250706
  Receipt Date: 20250803
  Transmission Date: 20251021
  Serious: Yes (Other)
  Sender: ALEXION PHARMACEUTICALS
  Company Number: GB-ASTRAZENECA-202506GBR025990GB

PATIENT
  Sex: Female

DRUGS (1)
  1. ULTOMIRIS [Suspect]
     Active Substance: RAVULIZUMAB-CWVZ
     Indication: Paroxysmal nocturnal haemoglobinuria
     Dosage: 3600 MILLIGRAM, Q8W

REACTIONS (5)
  - Red blood cell count decreased [Unknown]
  - Ascites [Unknown]
  - Neutrophil count decreased [Unknown]
  - Epistaxis [Unknown]
  - Platelet count decreased [Unknown]
